FAERS Safety Report 6027831-9 (Version None)
Quarter: 2009Q1

REPORT INFORMATION
  Report Type: 
  Country: None (occurrence: None)
  Receive Date: 20090105
  Receipt Date: 20081229
  Transmission Date: 20090719
  Serious: Yes (Other)
  Sender: FDA-Public Use
  Company Number: US-ROXANE LABORATORIES, INC.-2008-RO-00473RO

PATIENT
  Age: 59 Year
  Sex: Female

DRUGS (1)
  1. CHLORPROMAZINE [Suspect]
     Indication: EYE PAIN

REACTIONS (2)
  - FIBROSIS [None]
  - PAROPHTHALMIA [None]
